FAERS Safety Report 9777327 (Version 1)
Quarter: 2013Q4

REPORT INFORMATION
  Report Type: Spontaneous
  Country: US (occurrence: US)
  Receive Date: 20131221
  Receipt Date: 20131221
  Transmission Date: 20140711
  Serious: Yes (Other)
  Sender: FDA-Public Use
  Company Number: PHHY2013US144058

PATIENT
  Age: 12 Year
  Sex: Female

DRUGS (12)
  1. GLIVEC [Suspect]
     Indication: CHROMOSOME ANALYSIS ABNORMAL
     Dosage: 500 MG, DAILY
  2. GLIVEC [Suspect]
     Indication: ACUTE LYMPHOCYTIC LEUKAEMIA
  3. VINCRISTINE [Concomitant]
  4. MERCAPTOPURINE [Concomitant]
  5. DAUNORUBICIN [Concomitant]
  6. ASPARAGINASE [Concomitant]
  7. DEXAMETHASONE [Concomitant]
  8. CYTARABINE [Concomitant]
  9. METHOTREXATE [Concomitant]
  10. CYCLOPHOSPHAMIDE [Concomitant]
  11. IFOSFAMIDE [Concomitant]
  12. ETOPOSIDE [Concomitant]

REACTIONS (14)
  - Nephrotic syndrome [Not Recovered/Not Resolved]
  - Cytomegalovirus colitis [Unknown]
  - Cytomegalovirus chorioretinitis [Unknown]
  - Urine analysis abnormal [Unknown]
  - Periorbital oedema [Recovered/Resolved]
  - Proteinuria [Recovered/Resolved]
  - Oedema peripheral [Recovered/Resolved]
  - Blood albumin decreased [Recovered/Resolved]
  - Blood creatinine increased [Recovering/Resolving]
  - Blood lactate dehydrogenase increased [Unknown]
  - Kidney enlargement [Unknown]
  - Pyrexia [Unknown]
  - Diarrhoea [Unknown]
  - Fatigue [Unknown]
